FAERS Safety Report 9423547 (Version 1)
Quarter: 2013Q3

REPORT INFORMATION
  Report Type: Spontaneous
  Country: US (occurrence: US)
  Receive Date: 20130726
  Receipt Date: 20130726
  Transmission Date: 20140515
  Serious: Yes (Other)
  Sender: FDA-Public Use
  Company Number: US-ABBOTT-13P-163-1122646-00

PATIENT
  Sex: Female

DRUGS (1)
  1. HUMIRA [Suspect]
     Indication: INFLAMMATORY BOWEL DISEASE
     Dates: end: 2013

REACTIONS (5)
  - Troponin increased [Unknown]
  - Coronary artery disease [Not Recovered/Not Resolved]
  - Myocardial infarction [Unknown]
  - Electrocardiogram abnormal [Unknown]
  - Inflammatory bowel disease [Not Recovered/Not Resolved]
